FAERS Safety Report 9679273 (Version 1)
Quarter: 2013Q4

REPORT INFORMATION
  Report Type: Spontaneous
  Country: US (occurrence: US)
  Receive Date: 20131109
  Receipt Date: 20131109
  Transmission Date: 20140711
  Serious: Yes (Other)
  Sender: FDA-Public Use
  Company Number: US-009507513-1311USA003030

PATIENT
  Sex: Male

DRUGS (2)
  1. JANUMET [Suspect]
     Indication: DIABETES MELLITUS
     Dosage: 50MG/1000MG/ UNSPECIFIED
     Route: 048
  2. LANTUS [Concomitant]
     Dosage: UNK

REACTIONS (1)
  - Renal failure [Recovering/Resolving]
